FAERS Safety Report 22254556 (Version 4)
Quarter: 2023Q2

REPORT INFORMATION
  Report Type: Spontaneous
  Country: US (occurrence: US)
  Receive Date: 20230426
  Receipt Date: 20230619
  Transmission Date: 20230722
  Serious: No
  Sender: FDA-Public Use
  Company Number: US-002147023-NVSC2023US094541

PATIENT
  Sex: Female

DRUGS (1)
  1. VOTRIENT [Suspect]
     Active Substance: PAZOPANIB HYDROCHLORIDE
     Indication: Colon cancer
     Dosage: 400 MG, QD
     Route: 048
     Dates: start: 202304

REACTIONS (2)
  - Diarrhoea [Unknown]
  - Liver function test increased [Unknown]
